FAERS Safety Report 24440592 (Version 1)
Quarter: 2024Q4

REPORT INFORMATION
  Report Type: Report from Study
  Country: CO (occurrence: CO)
  Receive Date: 20241016
  Receipt Date: 20241016
  Transmission Date: 20250114
  Serious: Yes (Hospitalization)
  Sender: JOHNSON AND JOHNSON
  Company Number: CO-JNJFOC-20241037649

PATIENT
  Age: 49 Year
  Sex: Female
  Weight: 116 kg

DRUGS (3)
  1. INVEGA SUSTENNA [Suspect]
     Active Substance: PALIPERIDONE PALMITATE
     Indication: Schizoaffective disorder
     Dosage: LAST APPLICATION ON 17/SEP/2024
     Route: 030
     Dates: start: 20220810
  2. INVEGA SUSTENNA [Suspect]
     Active Substance: PALIPERIDONE PALMITATE
     Dosage: LAST APPLICATION ON 17/SEP/2024
     Route: 030
  3. INVEGA SUSTENNA [Suspect]
     Active Substance: PALIPERIDONE PALMITATE

REACTIONS (2)
  - Pneumonia [Recovering/Resolving]
  - Diaphragmatic hernia [Recovering/Resolving]

NARRATIVE: CASE EVENT DATE: 20240928
